FAERS Safety Report 16477284 (Version 1)
Quarter: 2019Q2

REPORT INFORMATION
  Report Type: Spontaneous
  Country: NL (occurrence: NL)
  Receive Date: 20190626
  Receipt Date: 20190626
  Transmission Date: 20190711
  Serious: Yes (Other)
  Sender: FDA-Public Use
  Company Number: NL-TEVA-2019-NL-1068615

PATIENT
  Sex: Male
  Weight: 82 kg

DRUGS (4)
  1. TEMESTA [Concomitant]
     Dosage: 2 MG
  2. METHYLFENIDAAT CAPSULE, 10 MG (MILLIGRAM) [Suspect]
     Active Substance: METHYLPHENIDATE HYDROCHLORIDE
     Indication: ATTENTION DEFICIT/HYPERACTIVITY DISORDER
     Dosage: 60MG D.D.
     Dates: start: 20180226
  3. METHYLFENIDAAT CAPSULE, 10 MG (MILLIGRAM) [Suspect]
     Active Substance: METHYLPHENIDATE HYDROCHLORIDE
     Dosage: 2X 5MGR. MORNING AND EVENING
     Dates: start: 20180322, end: 20190319
  4. ANAFRANIL 300 MG [Concomitant]
     Indication: ANXIETY DISORDER
     Dosage: 300

REACTIONS (3)
  - Rebound effect [Recovered/Resolved]
  - Ejaculation failure [Unknown]
  - Suicidal ideation [Unknown]
